FAERS Safety Report 15828764 (Version 1)
Quarter: 2019Q1

REPORT INFORMATION
  Report Type: Spontaneous
  Country: US (occurrence: US)
  Receive Date: 20190115
  Receipt Date: 20190115
  Transmission Date: 20190417
  Serious: No
  Sender: FDA-Public Use
  Company Number: US-REGENERON PHARMACEUTICALS, INC.-2018-19910

PATIENT

DRUGS (6)
  1. EYLEA [Suspect]
     Active Substance: AFLIBERCEPT
     Dosage: UNK,EVERY 28-30 DAYS, RIGHT EYE, LAST DOSE
     Dates: start: 20180327
  2. EYLEA [Suspect]
     Active Substance: AFLIBERCEPT
     Indication: MACULAR DEGENERATION
     Dosage: UNK, EVERY 6 WEEKS, RIGHT EYE
  3. EYLEA [Suspect]
     Active Substance: AFLIBERCEPT
     Dosage: UNK,EVERY 28-30 DAYS, RIGHT EYE
  4. LUCENTIS [Concomitant]
     Active Substance: RANIBIZUMAB
     Indication: PRODUCT USED FOR UNKNOWN INDICATION
  5. POTASSIUM [Concomitant]
     Active Substance: POTASSIUM
     Indication: PRODUCT USED FOR UNKNOWN INDICATION
  6. EYLEA [Suspect]
     Active Substance: AFLIBERCEPT
     Dosage: UNK, EVERY 5 WEEKS, RIGHT EYE

REACTIONS (1)
  - Visual impairment [Recovered/Resolved]
